FAERS Safety Report 11328279 (Version 1)
Quarter: 2015Q3

REPORT INFORMATION
  Report Type: Spontaneous
  Country: DE (occurrence: DE)
  Receive Date: 20150731
  Receipt Date: 20150731
  Transmission Date: 20151125
  Serious: Yes (Other)
  Sender: FDA-Public Use
  Company Number: DE-REGENERON PHARMACEUTICALS, INC.-2015-11749

PATIENT

DRUGS (4)
  1. EYLEA [Suspect]
     Active Substance: AFLIBERCEPT
     Dosage: 3 INJECTIONS
     Route: 031
     Dates: start: 201505, end: 201507
  2. GLYCOPYRRONIUM BROMIDE W/INDACATEROL MALEATE [Concomitant]
     Dosage: UNK
  3. EYLEA [Suspect]
     Active Substance: AFLIBERCEPT
     Indication: NEOVASCULAR AGE-RELATED MACULAR DEGENERATION
     Dosage: 12 INJECTIONS ON RIGHT EYE
     Route: 031
     Dates: start: 20130228, end: 20150212
  4. BRONCHOSPRAY [Concomitant]
     Dosage: UNK

REACTIONS (2)
  - Chronic obstructive pulmonary disease [Recovered/Resolved]
  - General physical health deterioration [Recovered/Resolved]

NARRATIVE: CASE EVENT DATE: 201303
